FAERS Safety Report 9197211 (Version 1)
Quarter: 2013Q1

REPORT INFORMATION
  Report Type: Spontaneous
  Country: US (occurrence: None)
  Receive Date: 20120709
  Receipt Date: 20120709
  Transmission Date: 20140127
  Serious: No
  Sender: FDA-Public Use
  Company Number: 2012HGS-003561

PATIENT
  Age: 31 Year
  Sex: Female
  Weight: 99.79 kg

DRUGS (4)
  1. BENLYSTA [Suspect]
     Indication: SYSTEMIC LUPUS ERYTHEMATOSUS
     Dosage: 1 IN 28 D, INTRAVENOUS DRIP
     Dates: start: 20120411
  2. HYDROXYCHLOROQUINE (HYDROXYCHLOROQUINE )(HYDROXYCHLOROQUINE ) [Concomitant]
  3. ALEVE (NAPROXEN SODIUM) (NAPROXEN SODIUM) [Concomitant]
  4. VITAMIN D (ERGOCALCIFEROL) (ERGOCALCIFEROL) [Concomitant]

REACTIONS (2)
  - Fatigue [None]
  - Bronchitis [None]
